FAERS Safety Report 4968824-X (Version None)
Quarter: 2006Q2

REPORT INFORMATION
  Report Type: 
  Country: None (occurrence: None)
  Receive Date: 20060411
  Receipt Date: 20060410
  Transmission Date: 20061013
  Serious: Yes (Other)
  Sender: FDA-Public Use
  Company Number: DE-GLAXOSMITHKLINE-D0049368A

PATIENT
  Age: 44 Year
  Sex: Male

DRUGS (5)
  1. LAMICTAL [Suspect]
     Route: 065
  2. ERGENYL CHRONO [Concomitant]
     Dosage: 500MG THREE TIMES PER DAY
     Route: 065
  3. KEPPRA [Concomitant]
     Route: 065
  4. DIPIPERON [Concomitant]
     Dosage: 40MG THREE TIMES PER DAY
     Route: 065
  5. VALPROATE SODIUM [Concomitant]
     Route: 065

REACTIONS (6)
  - AGGRESSION [None]
  - ANOREXIA [None]
  - CONVULSION [None]
  - EXCITABILITY [None]
  - IRRITABILITY [None]
  - REFUSAL OF TREATMENT BY PATIENT [None]
